FAERS Safety Report 4744714-2 (Version None)
Quarter: 2005Q3

REPORT INFORMATION
  Report Type: 
  Country: None (occurrence: None)
  Receive Date: 20050815
  Receipt Date: 20050720
  Transmission Date: 20060218
  Serious: Yes (Life-Threatening)
  Sender: FDA-Public Use
  Company Number: 2005AP04021

PATIENT
  Sex: Male
  Weight: 85 kg

DRUGS (5)
  1. XYLOCAINE W/ EPINEPHRINE [Suspect]
     Indication: EPIDURAL ANAESTHESIA
     Route: 008
  2. CHLORHEXIDINE GLUCONATE [Suspect]
     Route: 061
  3. MARCAINE [Concomitant]
     Indication: SPINAL ANAESTHESIA
     Route: 037
  4. CARBOCAIN [Concomitant]
     Indication: EPIDURAL ANAESTHESIA
     Route: 008
  5. IOPAMIRON [Concomitant]

REACTIONS (9)
  - AMNESIA [None]
  - APPLICATION SITE ERYTHEMA [None]
  - BLOOD PRESSURE DECREASED [None]
  - BLOOD PRESSURE SYSTOLIC INCREASED [None]
  - CARDIAC ARREST [None]
  - FEELING ABNORMAL [None]
  - HEART RATE INCREASED [None]
  - PRURITUS [None]
  - VENTRICULAR FIBRILLATION [None]
